FAERS Safety Report 6031850-6 (Version None)
Quarter: 2008Q4

REPORT INFORMATION
  Report Type: 
  Country: None (occurrence: None)
  Receive Date: 20081231
  Receipt Date: 20081107
  Transmission Date: 20090506
  Serious: Yes (Other)
  Sender: FDA-Public Use
  Company Number: 180494USA

PATIENT
  Sex: Female

DRUGS (1)
  1. LAMOTRIGINE [Suspect]
     Indication: EPILEPSY
     Dosage: 400 MG (200 MG, 2 IN 1 D) ,ORAL
     Route: 048

REACTIONS (9)
  - ASTHENIA [None]
  - CONVULSION [None]
  - DIZZINESS [None]
  - FEAR [None]
  - INSOMNIA [None]
  - SCREAMING [None]
  - SOMNOLENCE [None]
  - THIRST [None]
  - URINARY INCONTINENCE [None]
